FAERS Safety Report 24349299 (Version 1)
Quarter: 2024Q3

REPORT INFORMATION
  Report Type: Spontaneous
  Country: RS (occurrence: RS)
  Receive Date: 20240923
  Receipt Date: 20240923
  Transmission Date: 20241016
  Serious: Yes (Hospitalization, Other)
  Sender: MERCK
  Company Number: RS-009507513-2409SRB006346

PATIENT
  Sex: Female

DRUGS (2)
  1. CEFTOLOZANE SULFATE\TAZOBACTAM SODIUM [Suspect]
     Active Substance: CEFTOLOZANE SULFATE\TAZOBACTAM SODIUM
     Indication: Antibiotic therapy
     Dosage: 1.5 GRAM, Q8H
     Dates: start: 2022
  2. COLISTIN [Concomitant]
     Active Substance: COLISTIN
     Indication: Antibiotic therapy
     Dosage: UNK
     Dates: start: 2022

REACTIONS (20)
  - General physical health deterioration [Recovering/Resolving]
  - Gastrostomy [Recovered/Resolved]
  - Respiratory failure [Recovering/Resolving]
  - Oxygen saturation decreased [Unknown]
  - Tracheo-oesophageal fistula [Unknown]
  - Tracheostomy [Recovered/Resolved]
  - Tracheostomy [Recovered/Resolved]
  - Gastrointestinal tube insertion [Unknown]
  - Haemodynamic instability [Recovering/Resolving]
  - Blood fibrinogen abnormal [Unknown]
  - Fibrin D dimer increased [Unknown]
  - White blood cell count increased [Recovering/Resolving]
  - C-reactive protein increased [Recovering/Resolving]
  - Cough [Recovered/Resolved]
  - Bradycardia [Unknown]
  - Bronchial aspiration procedure [Recovered/Resolved]
  - Bronchoalveolar lavage [Recovered/Resolved]
  - Vomiting [Unknown]
  - Hypotension [Unknown]
  - Abdominal pain [Unknown]

NARRATIVE: CASE EVENT DATE: 20220101
